FAERS Safety Report 6429524-2 (Version None)
Quarter: 2009Q4

REPORT INFORMATION
  Report Type: 
  Country: None (occurrence: None)
  Receive Date: 20091102
  Receipt Date: 20091023
  Transmission Date: 20100525
  Serious: Yes (Hospitalization)
  Sender: FDA-Public Use
  Company Number: SPV1-2009-02125

PATIENT
  Age: 50 Year
  Sex: Female
  Weight: 72.6 kg

DRUGS (2)
  1. LIALDA [Suspect]
     Indication: COLITIS ULCERATIVE
     Dosage: 2.4 G, 1X/DAY:QD, ORAL
     Route: 048
     Dates: start: 20070101
  2. XANAX [Concomitant]

REACTIONS (5)
  - ALPHA 1 FOETOPROTEIN INCREASED [None]
  - CONDITION AGGRAVATED [None]
  - HEPATIC ENZYME INCREASED [None]
  - OVARIAN CYST [None]
  - RADICAL HYSTERECTOMY [None]
